FAERS Safety Report 10557278 (Version 1)
Quarter: 2014Q4

REPORT INFORMATION
  Report Type: Spontaneous
  Country: US (occurrence: None)
  Receive Date: 20141030
  Receipt Date: 20141030
  Transmission Date: 20150529
  Serious: No
  Sender: FDA-Public Use
  Company Number: None

PATIENT
  Age: 44 Year
  Sex: Female
  Weight: 122.47 kg

DRUGS (1)
  1. SILVER SULFADIAZINE. [Suspect]
     Active Substance: SILVER SULFADIAZINE
     Indication: RADIATION SKIN INJURY
     Dates: start: 20141024, end: 20141025

REACTIONS (4)
  - Pain of skin [None]
  - Neck pain [None]
  - Skin exfoliation [None]
  - Product quality issue [None]

NARRATIVE: CASE EVENT DATE: 20141025
